FAERS Safety Report 5095259-4 (Version None)
Quarter: 2006Q3

REPORT INFORMATION
  Report Type: 
  Country: None (occurrence: None)
  Receive Date: 20060901
  Receipt Date: 20060807
  Transmission Date: 20061208
  Serious: Yes (Life-Threatening)
  Sender: FDA-Public Use
  Company Number: JP-MERCK-0608USA02597

PATIENT
  Age: 62 Year
  Sex: Female

DRUGS (11)
  1. PEPCID [Suspect]
     Indication: PROPHYLAXIS
     Route: 042
     Dates: start: 20060725, end: 20060725
  2. FOY [Concomitant]
     Route: 065
     Dates: start: 20060725, end: 20060725
  3. MEPIVACAINE HYDROCHLORIDE [Concomitant]
     Route: 065
     Dates: start: 20060725, end: 20060725
  4. BUTORPHANOL TARTRATE [Concomitant]
     Route: 065
     Dates: start: 20060725, end: 20060725
  5. LIDOCAINE [Concomitant]
     Route: 065
     Dates: start: 20060725, end: 20060725
  6. VECURONIUM BROMIDE [Concomitant]
     Route: 065
     Dates: start: 20060725, end: 20060725
  7. PROPOFOL [Concomitant]
     Route: 065
     Dates: start: 20060725, end: 20060725
  8. EPHEDRINE HYDROCHLORIDE [Concomitant]
     Route: 065
     Dates: start: 20060725, end: 20060725
  9. ROPIVACAINE HYDROCHLORIDE [Concomitant]
     Route: 065
     Dates: start: 20060725, end: 20060725
  10. ATROPINE SULFATE [Concomitant]
     Route: 065
     Dates: start: 20060725, end: 20060725
  11. NEOSTIGMINE METHYLSULFATE [Concomitant]
     Route: 065
     Dates: start: 20060725, end: 20060725

REACTIONS (2)
  - ANAPHYLACTIC SHOCK [None]
  - SHOCK [None]
